FAERS Safety Report 25935304 (Version 1)
Quarter: 2025Q4

REPORT INFORMATION
  Report Type: Spontaneous
  Country: JP (occurrence: JP)
  Receive Date: 20251017
  Receipt Date: 20251017
  Transmission Date: 20260118
  Serious: Yes (Hospitalization)
  Sender: OTSUKA
  Company Number: JP-MMM-Otsuka-2EQ0VWZ3

PATIENT
  Age: 8 Decade
  Sex: Male

DRUGS (3)
  1. SAMSCA [Suspect]
     Active Substance: TOLVAPTAN
     Indication: Congenital cystic kidney disease
     Dosage: 30 MG, BID
     Dates: start: 2025, end: 2025
  2. SAMSCA [Suspect]
     Active Substance: TOLVAPTAN
     Dosage: 75 MG/DAY (60 MG-15 MG)
     Dates: end: 2025
  3. SAMSCA [Suspect]
     Active Substance: TOLVAPTAN
     Dosage: 75 MG/DAY (60 MG-15 MG)
     Dates: end: 2025

REACTIONS (2)
  - Cardiac failure chronic [Unknown]
  - Incorrect dose administered [Unknown]
